FAERS Safety Report 6680829-X (Version None)
Quarter: 2010Q2

REPORT INFORMATION
  Report Type: 
  Country: None (occurrence: None)
  Receive Date: 20100414
  Receipt Date: 20100412
  Transmission Date: 20101027
  Serious: Yes (Death)
  Sender: FDA-Public Use
  Company Number: US-ASTRAZENECA-2009SE15028

PATIENT
  Age: 20089 Day
  Sex: Female

DRUGS (3)
  1. SEROQUEL [Suspect]
     Dosage: 25 MG ONE TABLET IN THE MORNING AND MID-DAY AND TWO TABLETS AT BEDTIME
     Route: 048
     Dates: start: 20040115
  2. PAROXETINE HCL [Concomitant]
     Dosage: ONE TABLET DAILY IN THE MORNING
  3. DIAZEPAM [Concomitant]
     Dates: start: 20031209

REACTIONS (2)
  - DEATH [None]
  - TYPE 2 DIABETES MELLITUS [None]
